FAERS Safety Report 4836023-8 (Version None)
Quarter: 2005Q4

REPORT INFORMATION
  Report Type: 
  Country: None (occurrence: None)
  Receive Date: 20051123
  Receipt Date: 20051111
  Transmission Date: 20060501
  Serious: Yes (Hospitalization)
  Sender: FDA-Public Use
  Company Number: AU-MERCK-0511AUS00183

PATIENT
  Age: 87 Year
  Sex: Female
  Weight: 64 kg

DRUGS (2)
  1. FOSAMAX [Suspect]
     Indication: OSTEOPOROSIS
     Route: 048
     Dates: end: 20040501
  2. FOSAMAX [Suspect]
     Route: 048
     Dates: start: 20040501

REACTIONS (6)
  - DRUG ADMINISTRATION ERROR [None]
  - FALL [None]
  - HIP FRACTURE [None]
  - MUSCULOSKELETAL PAIN [None]
  - TREATMENT NONCOMPLIANCE [None]
  - WEIGHT INCREASED [None]
